FAERS Safety Report 4681877-1 (Version None)
Quarter: 2005Q2

REPORT INFORMATION
  Report Type: 
  Country: None (occurrence: None)
  Receive Date: 20050602
  Receipt Date: 20050513
  Transmission Date: 20051028
  Serious: Yes (Death, Other)
  Sender: FDA-Public Use
  Company Number: EWC050443696

PATIENT
  Age: 70 Year
  Sex: Female
  Weight: 50 kg

DRUGS (5)
  1. ZYPREXA [Suspect]
     Indication: AGITATION
     Dosage: 10 MG/1
     Dates: start: 20050419, end: 20050419
  2. CLOPIXOL ACUPHASE (ZUCLOPHENTHIXOL ACETATE) [Concomitant]
  3. CLOPIXOL DEPOT (ZUCLOPENTHIXOL DECANOATE) [Concomitant]
  4. MIRTAZAPINE [Concomitant]
  5. DIAZEPAM [Concomitant]

REACTIONS (2)
  - CARDIO-RESPIRATORY ARREST [None]
  - SYNCOPE [None]
